FAERS Safety Report 24307087 (Version 2)
Quarter: 2024Q4

REPORT INFORMATION
  Report Type: Report from Study
  Country: US (occurrence: US)
  Receive Date: 20240911
  Receipt Date: 20241005
  Transmission Date: 20250115
  Serious: Yes (Other)
  Sender: ABBVIE
  Company Number: US-ABBVIE-5908942

PATIENT
  Sex: Female

DRUGS (1)
  1. CREON [Suspect]
     Active Substance: PANCRELIPASE AMYLASE\PANCRELIPASE LIPASE\PANCRELIPASE PROTEASE
     Indication: Pancreatic failure
     Route: 048
     Dates: start: 20220301

REACTIONS (5)
  - Liver operation [Recovered/Resolved]
  - Pancreaticoduodenectomy [Recovering/Resolving]
  - Steatorrhoea [Recovering/Resolving]
  - Diarrhoea [Recovering/Resolving]
  - Pain in extremity [Recovered/Resolved]
